FAERS Safety Report 5173221-0 (Version None)
Quarter: 2006Q4

REPORT INFORMATION
  Report Type: 
  Country: None (occurrence: None)
  Receive Date: 20061214
  Receipt Date: 20061129
  Transmission Date: 20070319
  Serious: Yes (Hospitalization)
  Sender: FDA-Public Use
  Company Number: 2006SE06418

PATIENT
  Age: 28693 Day
  Sex: Female

DRUGS (8)
  1. BLOPRESS [Suspect]
     Indication: HYPERTENSION
     Route: 048
     Dates: start: 20040101, end: 20061101
  2. ARICEPT [Concomitant]
     Indication: DEMENTIA ALZHEIMER'S TYPE
     Route: 048
  3. WARFARIN SODIUM [Concomitant]
     Indication: ATRIAL FIBRILLATION
     Route: 048
  4. ALDACTONE [Concomitant]
     Indication: CARDIAC FAILURE CHRONIC
     Route: 048
  5. LASIX [Concomitant]
     Indication: CARDIAC FAILURE CHRONIC
     Route: 048
  6. INCREMIN [Concomitant]
     Indication: IRON DEFICIENCY ANAEMIA
     Route: 048
  7. STOMILASE [Concomitant]
     Indication: GASTRITIS
     Route: 048
  8. TSUMURA JUZENTAIHOTO [Concomitant]
     Route: 048

REACTIONS (1)
  - HYPOGLYCAEMIA [None]
